FAERS Safety Report 8426085-3 (Version None)
Quarter: 2012Q2

REPORT INFORMATION
  Report Type: 
  Country: None (occurrence: None)
  Receive Date: 20120611
  Receipt Date: 20120604
  Transmission Date: 20120825
  Serious: Yes (Other)
  Sender: FDA-Public Use
  Company Number: JP-ELI_LILLY_AND_COMPANY-JP201206001502

PATIENT
  Sex: Female

DRUGS (2)
  1. FORTEO [Suspect]
     Dosage: UNK
     Route: 058
  2. FORTEO [Suspect]
     Route: 058

REACTIONS (5)
  - DRUG DOSE OMISSION [None]
  - MUSCULOSKELETAL DISCOMFORT [None]
  - LABILE BLOOD PRESSURE [None]
  - CEREBRAL INFARCTION [None]
  - MALAISE [None]
